FAERS Safety Report 7590874-8 (Version None)
Quarter: 2011Q3

REPORT INFORMATION
  Report Type: 
  Country: None (occurrence: None)
  Receive Date: 20110705
  Receipt Date: 20110624
  Transmission Date: 20111222
  Serious: Yes (Other)
  Sender: FDA-Public Use
  Company Number: PHHY2010US83078

PATIENT
  Sex: Male

DRUGS (4)
  1. PREDNISONE [Concomitant]
     Dosage: 1 MG, UNK
  2. ANTIDIABETICS [Concomitant]
  3. BETA BLOCKING AGENTS [Concomitant]
  4. TASIGNA [Suspect]
     Indication: CHRONIC MYELOID LEUKAEMIA
     Dosage: 300 MG, BID
     Route: 048
     Dates: start: 20101105

REACTIONS (9)
  - WEIGHT INCREASED [None]
  - HAEMORRHOIDS [None]
  - PRURITUS [None]
  - ERYTHEMA [None]
  - PAIN [None]
  - CONSTIPATION [None]
  - BURNING SENSATION [None]
  - RASH [None]
  - BLOOD GLUCOSE INCREASED [None]
